FAERS Safety Report 9551406 (Version 1)
Quarter: 2013Q3

REPORT INFORMATION
  Report Type: Spontaneous
  Country: US (occurrence: None)
  Receive Date: 20130724
  Receipt Date: 20130724
  Transmission Date: 20140515
  Serious: Yes (Hospitalization, Other)
  Sender: FDA-Public Use
  Company Number: PHEH2012US011167

PATIENT
  Age: 90 Year
  Sex: Female
  Weight: 51 kg

DRUGS (6)
  1. GLEEVEC (IMATINIB) UNKNOWN [Suspect]
     Indication: GASTROINTESTINAL STROMAL TUMOUR
     Dosage: 400 MG, DAILY, ORAL
     Route: 048
     Dates: start: 20110405
  2. COREG (CARVEDILOL) [Concomitant]
  3. LASIX (FUROSEMIDE) [Concomitant]
  4. ZETIA (EZETIMIBE) [Concomitant]
  5. SIMVASTATIN (SIMVASTATIN) [Concomitant]
  6. OMEPRAZOLE (OMEPRAZOLE) [Concomitant]

REACTIONS (9)
  - Neoplasm progression [None]
  - Anaemia [None]
  - Oedema peripheral [None]
  - Gastrointestinal haemorrhage [None]
  - Metastases to liver [None]
  - Abdominal pain upper [None]
  - Malignant neoplasm progression [None]
  - Haemoglobin decreased [None]
  - Rectal haemorrhage [None]
